FAERS Safety Report 5184686-2 (Version None)
Quarter: 2006Q4

REPORT INFORMATION
  Report Type: 
  Country: None (occurrence: None)
  Receive Date: 20061212
  Receipt Date: 20061205
  Transmission Date: 20070319
  Serious: Yes (Death, Other)
  Sender: FDA-Public Use
  Company Number: 163-20785-06020395

PATIENT
  Age: 72 Year
  Sex: Male

DRUGS (12)
  1. THALOMID [Suspect]
     Indication: MYELODYSPLASTIC SYNDROME
     Dosage: 50 MG ALTERNATING WITH 100 MG, QHS, ORAL; 50 MG, EVERY OTHER NIGHT, ORAL
     Route: 048
     Dates: start: 20030424, end: 20060701
  2. THALOMID [Suspect]
     Indication: REFRACTORY ANAEMIA
     Dosage: 50 MG ALTERNATING WITH 100 MG, QHS, ORAL; 50 MG, EVERY OTHER NIGHT, ORAL
     Route: 048
     Dates: start: 20030424, end: 20060701
  3. THALOMID [Suspect]
     Indication: MYELODYSPLASTIC SYNDROME
     Dosage: 50 MG ALTERNATING WITH 100 MG, QHS, ORAL; 50 MG, EVERY OTHER NIGHT, ORAL
     Route: 048
     Dates: start: 20060701, end: 20060701
  4. THALOMID [Suspect]
     Indication: REFRACTORY ANAEMIA
     Dosage: 50 MG ALTERNATING WITH 100 MG, QHS, ORAL; 50 MG, EVERY OTHER NIGHT, ORAL
     Route: 048
     Dates: start: 20060701, end: 20060701
  5. ALBUTEROL SULFATE [Suspect]
     Indication: DRUG USE FOR UNKNOWN INDICATION
  6. THEOPHYLLINE [Concomitant]
  7. ALLOPURINOL [Concomitant]
  8. ATENOLOL [Concomitant]
  9. SIMVASTATIN [Concomitant]
  10. NITROGYLCERIN PATCH (GLYCERYL TRINITRATE) [Concomitant]
  11. SEREVENT [Concomitant]
  12. TORESEMIDE (TORASEMIDE) [Concomitant]

REACTIONS (6)
  - BLOOD COUNT ABNORMAL [None]
  - CONSTIPATION [None]
  - HYPOAESTHESIA [None]
  - LUNG CARCINOMA CELL TYPE UNSPECIFIED STAGE III [None]
  - NERVOUSNESS [None]
  - OEDEMA PERIPHERAL [None]
